FAERS Safety Report 7904642-8 (Version None)
Quarter: 2011Q4

REPORT INFORMATION
  Report Type: 
  Country: None (occurrence: None)
  Receive Date: 20111109
  Receipt Date: 20111028
  Transmission Date: 20120403
  Serious: Yes (Congenital Anomaly)
  Sender: FDA-Public Use
  Company Number: US-GLAXOSMITHKLINE-A0950318A

PATIENT
  Sex: Male
  Weight: 2.5 kg

DRUGS (3)
  1. PHENERGAN [Concomitant]
  2. PAXIL CR [Suspect]
     Indication: DEPRESSION
     Dosage: 25MG UNKNOWN
     Route: 064
  3. MULTI-VITAMINS [Concomitant]

REACTIONS (1)
  - PECTUS EXCAVATUM [None]
